FAERS Safety Report 24906414 (Version 2)
Quarter: 2025Q1

REPORT INFORMATION
  Report Type: Spontaneous
  Country: CN (occurrence: CN)
  Receive Date: 20250130
  Receipt Date: 20250205
  Transmission Date: 20250409
  Serious: Yes (Life-Threatening)
  Sender: PFIZER
  Company Number: CN-MLMSERVICE-20250120-PI365498-00133-1

PATIENT
  Age: 50 Year
  Sex: Female

DRUGS (6)
  1. PACLITAXEL [Suspect]
     Active Substance: PACLITAXEL
     Indication: Angiosarcoma
     Dates: start: 20220926
  2. EPIRUBICIN HYDROCHLORIDE [Suspect]
     Active Substance: EPIRUBICIN HYDROCHLORIDE
     Indication: Angiosarcoma
     Dates: start: 20220926
  3. IFOSFAMIDE [Suspect]
     Active Substance: IFOSFAMIDE
     Indication: Angiosarcoma
     Dates: start: 20220926
  4. BEVACIZUMAB [Suspect]
     Active Substance: BEVACIZUMAB
     Indication: Angiosarcoma
     Dates: start: 20220926
  5. CATEQUENTINIB [Suspect]
     Active Substance: CATEQUENTINIB
     Indication: Angiosarcoma
     Dates: start: 20220926
  6. CADONILIMAB [Suspect]
     Active Substance: CADONILIMAB
     Indication: Angiosarcoma
     Dates: start: 20220926

REACTIONS (1)
  - Myelosuppression [Unknown]
